FAERS Safety Report 12700907 (Version 1)
Quarter: 2016Q3

REPORT INFORMATION
  Report Type: Spontaneous
  Country: AT (occurrence: AT)
  Receive Date: 20160830
  Receipt Date: 20160830
  Transmission Date: 20161109
  Serious: Yes (Other)
  Sender: FDA-Public Use
  Company Number: AT-ASTRAZENECA-2016SE90776

PATIENT
  Age: 15736 Day
  Sex: Male
  Weight: 98 kg

DRUGS (4)
  1. BYDUREON [Suspect]
     Active Substance: EXENATIDE
     Indication: DIABETES MELLITUS
     Dosage: DUAL CHAMBER PEN, 2 MG ONCE A WEEK
     Route: 058
     Dates: start: 20160818, end: 20160818
  2. LISINOPRIL. [Concomitant]
     Active Substance: LISINOPRIL
  3. BYDUREON [Suspect]
     Active Substance: EXENATIDE
     Indication: DIABETES MELLITUS
     Dosage: KIT
     Route: 065
     Dates: start: 2015, end: 2016
  4. METFORMIN [Concomitant]
     Active Substance: METFORMIN HYDROCHLORIDE
     Route: 048
     Dates: start: 2001

REACTIONS (3)
  - Syncope [Recovering/Resolving]
  - Diabetes mellitus inadequate control [Unknown]
  - Off label use [Unknown]

NARRATIVE: CASE EVENT DATE: 20160819
